FAERS Safety Report 10370154 (Version 1)
Quarter: 2014Q3

REPORT INFORMATION
  Report Type: Spontaneous
  Country: US (occurrence: None)
  Receive Date: 20140806
  Receipt Date: 20140806
  Transmission Date: 20150326
  Serious: No
  Sender: FDA-Public Use
  Company Number: None

PATIENT
  Age: 70 Year
  Sex: Female
  Weight: 77 kg

DRUGS (2)
  1. CYTARABINE. [Suspect]
     Active Substance: CYTARABINE
     Dates: start: 20130326
  2. DAUNORUBICIN [Suspect]
     Active Substance: DAUNORUBICIN
     Dates: start: 20130322

REACTIONS (10)
  - Hypotension [None]
  - Thrombophlebitis [None]
  - Metabolic acidosis [None]
  - Tachycardia [None]
  - White blood cell count increased [None]
  - Diverticulitis [None]
  - Tachypnoea [None]
  - Renal failure acute [None]
  - Jugular vein thrombosis [None]
  - Sepsis [None]

NARRATIVE: CASE EVENT DATE: 20130328
